FAERS Safety Report 11260454 (Version 1)
Quarter: 2015Q3

REPORT INFORMATION
  Report Type: Spontaneous
  Country: US (occurrence: US)
  Receive Date: 20150710
  Receipt Date: 20150710
  Transmission Date: 20151125
  Serious: No
  Sender: FDA-Public Use
  Company Number: US-PURDUE-USA-2014-0119055

PATIENT
  Age: 48 Year
  Sex: Female

DRUGS (4)
  1. BUTRANS [Suspect]
     Active Substance: BUPRENORPHINE
     Dosage: 15 MCG/HR, WEEKLY
     Route: 062
     Dates: start: 201405, end: 201405
  2. BUTRANS [Suspect]
     Active Substance: BUPRENORPHINE
     Indication: ARTHRALGIA
     Dosage: 20 MCG/HR, WEEKLY
     Route: 062
     Dates: start: 201406, end: 201412
  3. BUTRANS [Suspect]
     Active Substance: BUPRENORPHINE
     Dosage: 5 MCG/HR, WEEKLY
     Route: 062
     Dates: start: 201404, end: 201404
  4. BUTRANS [Suspect]
     Active Substance: BUPRENORPHINE
     Indication: BACK PAIN
     Dosage: 15 MCG/HR, WEEKLY
     Route: 062
     Dates: start: 201412, end: 201412

REACTIONS (8)
  - Application site pruritus [Unknown]
  - Drug ineffective [Unknown]
  - Application site urticaria [Unknown]
  - Application site pain [Unknown]
  - Application site dryness [Unknown]
  - Application site scar [Unknown]
  - Application site scab [Unknown]
  - Application site discharge [Unknown]

NARRATIVE: CASE EVENT DATE: 201404
